FAERS Safety Report 14290203 (Version 1)
Quarter: 2017Q4

REPORT INFORMATION
  Report Type: Spontaneous
  Country: US (occurrence: US)
  Receive Date: 20171214
  Receipt Date: 20171214
  Transmission Date: 20180321
  Serious: Yes (Hospitalization)
  Sender: FDA-Public Use
  Company Number: None

PATIENT
  Age: 6 Month
  Sex: Female
  Weight: 49.05 kg

DRUGS (7)
  1. KISQALI FEMARA CO-PACK [Suspect]
     Active Substance: LETROZOLE\RIBOCICLIB
     Indication: BREAST CANCER
     Route: 048
     Dates: start: 20171128
  2. RANITIDINE. [Concomitant]
     Active Substance: RANITIDINE
  3. PSEUDOEPHEDRINE [Suspect]
     Active Substance: PSEUDOEPHEDRINE
  4. VITAMIN D [Concomitant]
     Active Substance: CHOLECALCIFEROL
  5. MULTIVITAMIN [Concomitant]
     Active Substance: VITAMINS
  6. ADVIL [Concomitant]
     Active Substance: IBUPROFEN
  7. CLARITIN [Concomitant]
     Active Substance: LORATADINE

REACTIONS (6)
  - Anxiety [None]
  - Dehydration [None]
  - Dizziness [None]
  - Migraine [None]
  - Neoplasm malignant [None]
  - Photophobia [None]

NARRATIVE: CASE EVENT DATE: 20171202
